FAERS Safety Report 17853859 (Version 1)
Quarter: 2020Q2

REPORT INFORMATION
  Report Type: Spontaneous
  Country: US (occurrence: US)
  Receive Date: 20200603
  Receipt Date: 20200603
  Transmission Date: 20200714
  Serious: No
  Sender: FDA-Public Use
  Company Number: US-TEVA-2020-US-1242726

PATIENT
  Sex: Female

DRUGS (1)
  1. VERAPAMIL HYDROCHOLORIDE TEVA [Suspect]
     Active Substance: VERAPAMIL HYDROCHLORIDE
     Route: 065

REACTIONS (5)
  - Skin haemorrhage [Unknown]
  - Reaction to excipient [Unknown]
  - Product substitution issue [Unknown]
  - Pruritus [Unknown]
  - Rash macular [Unknown]
